FAERS Safety Report 7555324-6 (Version None)
Quarter: 2011Q2

REPORT INFORMATION
  Report Type: 
  Country: None (occurrence: None)
  Receive Date: 20110617
  Receipt Date: 20110606
  Transmission Date: 20111010
  Serious: Yes (Other)
  Sender: FDA-Public Use
  Company Number: PHHY2011IT50549

PATIENT
  Age: 25 Year
  Sex: Female

DRUGS (1)
  1. EXJADE [Suspect]
     Indication: CONGENITAL APLASTIC ANAEMIA
     Dosage: 22 MG/KG/ DAY
     Route: 048
     Dates: start: 20110505

REACTIONS (5)
  - DIARRHOEA [None]
  - SEPSIS [None]
  - PYREXIA [None]
  - MULTI-ORGAN FAILURE [None]
  - DEHYDRATION [None]
